FAERS Safety Report 8050204-4 (Version None)
Quarter: 2012Q1

REPORT INFORMATION
  Report Type: 
  Country: None (occurrence: None)
  Receive Date: 20120117
  Receipt Date: 20120109
  Transmission Date: 20120608
  Serious: Yes (Hospitalization)
  Sender: FDA-Public Use
  Company Number: CHPA2012US000811

PATIENT
  Age: 26 Year
  Sex: Female

DRUGS (1)
  1. EXCEDRIN EXTRA STRENGTH CAPLETS [Suspect]
     Indication: HEADACHE
     Dosage: 2 DF, UNK
     Route: 048

REACTIONS (1)
  - HYPERTENSION [None]
